FAERS Safety Report 13501027 (Version 3)
Quarter: 2020Q2

REPORT INFORMATION
  Report Type: Spontaneous
  Country: US (occurrence: US)
  Receive Date: 20170501
  Receipt Date: 20200505
  Transmission Date: 20200713
  Serious: No
  Sender: FDA-Public Use
  Company Number: US-ROCHE-1852227

PATIENT
  Age: 78 Year
  Sex: Male
  Weight: 70.82 kg

DRUGS (3)
  1. ESBRIET [Suspect]
     Active Substance: PIRFENIDONE
     Indication: IDIOPATHIC PULMONARY FIBROSIS
     Dosage: ONE TID
     Route: 048
     Dates: start: 20170104, end: 20170112
  2. ESBRIET [Suspect]
     Active Substance: PIRFENIDONE
     Indication: IDIOPATHIC PULMONARY FIBROSIS
     Dosage: 1 TAB TID FOR 7 DAYS
     Route: 048
     Dates: start: 20161024, end: 20161101
  3. ESBRIET [Suspect]
     Active Substance: PIRFENIDONE
     Dosage: 3 EVERY MORNING, 2 AT NOON, 3 EVERY EVENING ;ONGOING: YES
     Route: 048
     Dates: start: 20181216

REACTIONS (10)
  - Hypoaesthesia [Unknown]
  - Dizziness [Unknown]
  - Dyspnoea [Not Recovered/Not Resolved]
  - Malaise [Unknown]
  - Arthralgia [Unknown]
  - Abdominal discomfort [Unknown]
  - Dyspnoea [Unknown]
  - Gastric disorder [Recovered/Resolved]
  - Abdominal pain upper [Recovered/Resolved]
  - Asthenia [Unknown]

NARRATIVE: CASE EVENT DATE: 20170112
